FAERS Safety Report 11869273 (Version 4)
Quarter: 2016Q2

REPORT INFORMATION
  Report Type: Report from Study
  Country: CA (occurrence: CA)
  Receive Date: 20151226
  Receipt Date: 20160520
  Transmission Date: 20160815
  Serious: Yes (Hospitalization)
  Sender: FDA-Public Use
  Company Number: PHHY2015CA078058

PATIENT
  Sex: Male

DRUGS (1)
  1. GLEEVEC [Suspect]
     Active Substance: IMATINIB MESYLATE
     Indication: GASTROINTESTINAL STROMAL TUMOUR
     Dosage: 400 MG, QD
     Route: 048
     Dates: start: 20150309

REACTIONS (10)
  - Post procedural infection [Recovering/Resolving]
  - Cellulitis [Unknown]
  - Photosensitivity reaction [Unknown]
  - Fatigue [Unknown]
  - Post procedural complication [Unknown]
  - Skin sensitisation [Unknown]
  - Gait disturbance [Unknown]
  - Haemoglobin increased [Unknown]
  - Asthenia [Unknown]
  - Dysgeusia [Unknown]
